FAERS Safety Report 25844712 (Version 1)
Quarter: 2025Q3

REPORT INFORMATION
  Report Type: Report from Study
  Country: US (occurrence: US)
  Receive Date: 20250925
  Receipt Date: 20250925
  Transmission Date: 20251020
  Serious: No
  Sender: SUNOVION
  Company Number: US-SUMITOMO PHARMA SWITZERLAND GMBH-2025SPA012139

PATIENT
  Age: 72 Year
  Sex: Male

DRUGS (9)
  1. ORGOVYX [Suspect]
     Active Substance: RELUGOLIX
     Indication: Prostate cancer
     Route: 048
  2. ORGOVYX [Suspect]
     Active Substance: RELUGOLIX
     Route: 048
  3. ASPIRIN [Concomitant]
     Active Substance: ASPIRIN
  4. ATORVASTATIN CALCIUM [Concomitant]
     Active Substance: ATORVASTATIN CALCIUM
  5. FISH OIL [Concomitant]
     Active Substance: FISH OIL
  6. FLOMAX [Concomitant]
     Active Substance: TAMSULOSIN HYDROCHLORIDE
  7. HYDROXYUREA [Concomitant]
     Active Substance: HYDROXYUREA
  8. INDAPAMIDE [Concomitant]
     Active Substance: INDAPAMIDE
  9. LOSARTAN POTASSIUM [Concomitant]
     Active Substance: LOSARTAN POTASSIUM

REACTIONS (1)
  - Hot flush [Unknown]
